FAERS Safety Report 9144158 (Version 3)
Quarter: 2013Q2

REPORT INFORMATION
  Report Type: Spontaneous
  Country: US (occurrence: US)
  Receive Date: 20130306
  Receipt Date: 20130503
  Transmission Date: 20140414
  Serious: Yes (Hospitalization)
  Sender: FDA-Public Use
  Company Number: US-PFIZER INC-2013077054

PATIENT
  Age: 31 Year
  Sex: Female
  Weight: 68 kg

DRUGS (10)
  1. NICOTROL INHALER [Suspect]
     Indication: SMOKING CESSATION THERAPY
     Dosage: UNK
     Dates: start: 20121027, end: 2012
  2. NICORETTE [Suspect]
     Indication: SMOKING CESSATION THERAPY
     Dosage: UNK
     Dates: start: 2012
  3. NICORETTE [Suspect]
     Indication: SMOKING CESSATION THERAPY
     Dosage: UNK
     Dates: start: 2012
  4. LAMOTRIGINE [Concomitant]
     Dosage: 25 MG, 2X/DAY
  5. CLONAZEPAM [Concomitant]
     Dosage: 2 MG, 3X/DAY
  6. FLUPHENAZINE [Concomitant]
     Dosage: 1 MG, 2X/DAY
  7. ULTRAM [Concomitant]
     Dosage: 50 MG, EVERY 6 HOURS AS NEEDED
  8. CHLORPROMAZINE [Concomitant]
     Dosage: 25 MG, 1 AT BEDTIME
  9. PROTONIX [Concomitant]
     Dosage: 40 MG, 1X/DAY
  10. PROMETHAZINE [Concomitant]
     Dosage: 25 MG, 2X/DAY AS NEEDED

REACTIONS (10)
  - Fall [Not Recovered/Not Resolved]
  - Head injury [Unknown]
  - Brain injury [Unknown]
  - Malaise [Unknown]
  - Pruritus [Unknown]
  - Feeling abnormal [Unknown]
  - Dizziness [Not Recovered/Not Resolved]
  - Hypersensitivity [Unknown]
  - Thermal burn [Unknown]
  - Nausea [Unknown]
